FAERS Safety Report 8784417 (Version 1)
Quarter: 2012Q4

REPORT INFORMATION
  Report Type: Spontaneous
  Country: GB (occurrence: None)
  Receive Date: 20120830
  Receipt Date: 20120830
  Transmission Date: 20130627
  Serious: Yes (Life-Threatening, Hospitalization, Disabling, Other)
  Sender: FDA-Public Use
  Company Number: GER/UKI/12/0025563

PATIENT
  Age: 34 Year
  Sex: Male

DRUGS (2)
  1. SERTRALINE (SERTRALINE) (SERTRALINE) [Suspect]
     Indication: DRUG USE FOR UNKNOWN INDICATION
     Route: 048
     Dates: start: 20090618, end: 20100701
  2. DIAZEPAM (DIAZEPAM) [Concomitant]

REACTIONS (2)
  - Paraesthesia [None]
  - Convulsion [None]
